FAERS Safety Report 14345406 (Version 3)
Quarter: 2018Q1

REPORT INFORMATION
  Report Type: Spontaneous
  Country: US (occurrence: US)
  Receive Date: 20180103
  Receipt Date: 20180322
  Transmission Date: 20180509
  Serious: Yes (Death, Other)
  Sender: FDA-Public Use
  Company Number: US-BRISTOL-MYERS SQUIBB COMPANY-BMS-2017-119292

PATIENT
  Age: 72 Year
  Sex: Female
  Weight: 57.59 kg

DRUGS (2)
  1. YERVOY [Suspect]
     Active Substance: IPILIMUMAB
     Indication: MALIGNANT MELANOMA
     Dosage: UNK
     Route: 042
     Dates: start: 2015
  2. YERVOY [Suspect]
     Active Substance: IPILIMUMAB
     Indication: PRODUCT USED FOR UNKNOWN INDICATION
     Dosage: UNK
     Route: 042
     Dates: start: 2017

REACTIONS (11)
  - Adrenal insufficiency [Unknown]
  - Adrenal disorder [Unknown]
  - Dehydration [Unknown]
  - Gait disturbance [Unknown]
  - Pain in extremity [Unknown]
  - Head discomfort [Unknown]
  - Metastases to bone [Unknown]
  - Malignant neoplasm progression [Fatal]
  - Muscular weakness [Unknown]
  - Asthenia [Unknown]
  - Arthralgia [Unknown]

NARRATIVE: CASE EVENT DATE: 201705
